FAERS Safety Report 8813397 (Version 1)
Quarter: 2012Q4

REPORT INFORMATION
  Report Type: 
  Country: US (occurrence: US)
  Receive Date: 20120927
  Receipt Date: 20120927
  Transmission Date: 20130627
  Serious: No
  Sender: FDA-Public Use
  Company Number: US-AMGEN-USASP2012045228

PATIENT
  Age: 61 Year
  Sex: Female
  Weight: 51 kg

DRUGS (4)
  1. PROLIA [Suspect]
     Indication: OSTEOPOROSIS POSTMENOPAUSAL
     Dosage: UNK UNK, q6mo
     Dates: start: 20120607
  2. SYNTHROID [Concomitant]
     Indication: HYPOTHYROIDISM
     Dosage: UNK
     Route: 048
  3. URSODIOL [Concomitant]
     Indication: BILIARY CIRRHOSIS PRIMARY
     Dosage: UNK
     Route: 048
  4. CALCIUM CITRATE [Concomitant]
     Indication: OSTEOPOROSIS
     Route: 048

REACTIONS (8)
  - Ear pain [Recovered/Resolved]
  - Pain in jaw [Recovered/Resolved]
  - Ear infection [Recovered/Resolved]
  - Hypoaesthesia [Not Recovered/Not Resolved]
  - Paraesthesia [Not Recovered/Not Resolved]
  - Sensation of heaviness [Not Recovered/Not Resolved]
  - Arthralgia [Not Recovered/Not Resolved]
  - Pain in extremity [Not Recovered/Not Resolved]
